FAERS Safety Report 5246363-9 (Version None)
Quarter: 2007Q1

REPORT INFORMATION
  Report Type: 
  Country: None (occurrence: None)
  Receive Date: 20070226
  Receipt Date: 20070215
  Transmission Date: 20070707
  Serious: Yes (Other)
  Sender: FDA-Public Use
  Company Number: US-JNJFOC-20061106542

PATIENT
  Sex: Female

DRUGS (7)
  1. REMICADE [Suspect]
     Indication: RHEUMATOID ARTHRITIS
     Route: 042
  2. HUMIRA [Suspect]
     Indication: RHEUMATOID ARTHRITIS
  3. METHOTREXATE [Concomitant]
     Dosage: HAS REQUIRED UP TO 30 MG
  4. PLAQUENIL [Concomitant]
  5. AZULFIDINE [Concomitant]
  6. STEROID [Concomitant]
  7. CELEBREX [Concomitant]

REACTIONS (1)
  - BREAST CANCER METASTATIC [None]
